FAERS Safety Report 9118735 (Version 1)
Quarter: 2013Q1

REPORT INFORMATION
  Report Type: Report from Study
  Country: JP (occurrence: JP)
  Receive Date: 20130226
  Receipt Date: 20130226
  Transmission Date: 20140127
  Serious: Yes (Hospitalization)
  Sender: FDA-Public Use
  Company Number: JP-BIOGENIDEC-2012BI056805

PATIENT
  Age: 49 Year
  Sex: Female

DRUGS (12)
  1. TYSABRI [Suspect]
     Indication: RELAPSING-REMITTING MULTIPLE SCLEROSIS
     Dates: start: 20120206, end: 20120820
  2. CEPHADOL [Concomitant]
     Dates: start: 20081020, end: 20121011
  3. TAKEPRON [Concomitant]
     Dates: start: 20090420, end: 20121011
  4. TEGRETOL [Concomitant]
     Dates: start: 20081112, end: 20121013
  5. GABAPEN [Concomitant]
     Dates: start: 20090518, end: 20100426
  6. CERCINE [Concomitant]
     Dates: start: 20100426, end: 20121026
  7. CYMBALTA [Concomitant]
     Dates: start: 20120204, end: 20121203
  8. LOXONIN [Concomitant]
     Dates: start: 20120709, end: 20121012
  9. PREDONINE [Concomitant]
     Dates: start: 20120926
  10. MUCOSTA [Concomitant]
     Dates: start: 20120926
  11. NEXIUM [Concomitant]
     Dates: start: 20120926
  12. MOHRUS TAPE [Concomitant]
     Dates: start: 20090223

REACTIONS (1)
  - Interstitial lung disease [Recovered/Resolved]
